FAERS Safety Report 13567752 (Version 2)
Quarter: 2017Q3

REPORT INFORMATION
  Report Type: Spontaneous
  Country: JP (occurrence: JP)
  Receive Date: 20170522
  Receipt Date: 20170811
  Transmission Date: 20171127
  Serious: Yes (Death)
  Sender: FDA-Public Use
  Company Number: JP-JNJFOC-20170519727

PATIENT
  Age: 85 Year
  Sex: Female
  Weight: 44 kg

DRUGS (5)
  1. CANAGLU [Suspect]
     Active Substance: CANAGLIFLOZIN
     Indication: TYPE 2 DIABETES MELLITUS
     Route: 048
     Dates: start: 20160909, end: 20170131
  2. LASIX [Concomitant]
     Active Substance: FUROSEMIDE
     Route: 048
     Dates: end: 20170131
  3. COMPLAVIN [Concomitant]
     Active Substance: ASPIRIN\CLOPIDOGREL BISULFATE
     Route: 048
     Dates: end: 20170131
  4. SPIRONOLACTONE. [Concomitant]
     Active Substance: SPIRONOLACTONE
     Route: 048
     Dates: end: 20170131
  5. ZOLPIDEM TARTRATE. [Concomitant]
     Active Substance: ZOLPIDEM TARTRATE
     Route: 048
     Dates: end: 20170131

REACTIONS (1)
  - Accident [Fatal]
